FAERS Safety Report 11694396 (Version 1)
Quarter: 2015Q4

REPORT INFORMATION
  Report Type: Spontaneous
  Country: CN (occurrence: CN)
  Receive Date: 20151103
  Receipt Date: 20151103
  Transmission Date: 20160304
  Serious: Yes (Death)
  Sender: FDA-Public Use
  Company Number: CN-JNJFOC-20151100515

PATIENT
  Age: 73 Year
  Sex: Male

DRUGS (1)
  1. DUROGESIC D-TRANS [Suspect]
     Active Substance: FENTANYL
     Indication: CANCER PAIN
     Route: 062
     Dates: start: 20151030

REACTIONS (1)
  - Death [Fatal]
